FAERS Safety Report 19227342 (Version 1)
Quarter: 2021Q2

REPORT INFORMATION
  Report Type: Spontaneous
  Country: US (occurrence: US)
  Receive Date: 20210507
  Receipt Date: 20210507
  Transmission Date: 20210717
  Serious: No
  Sender: FDA-Public Use
  Company Number: US-CELGENEUS-USA-20210407422

PATIENT
  Sex: Male

DRUGS (2)
  1. THALOMID [Suspect]
     Active Substance: THALIDOMIDE
     Indication: PLASMA CELL MYELOMA
     Dosage: 100 MILLIGRAM
     Route: 048
     Dates: start: 202102
  2. THALOMID [Suspect]
     Active Substance: THALIDOMIDE
     Indication: CROHN^S DISEASE
     Dosage: 50 MILLIGRAM
     Route: 048
     Dates: start: 202012

REACTIONS (1)
  - Alopecia [Unknown]
